FAERS Safety Report 9035214 (Version 1)
Quarter: 2013Q1

REPORT INFORMATION
  Report Type: Report from Study
  Country: US (occurrence: US)
  Receive Date: 20130129
  Receipt Date: 20130129
  Transmission Date: 20140127
  Serious: No
  Sender: FDA-Public Use
  Company Number: US-ABBOTT-12P-163-0896309-00

PATIENT
  Age: 60 Year
  Sex: Female

DRUGS (6)
  1. HUMIRA 40 MG/0.8 ML PEN [Suspect]
     Indication: CROHN^S DISEASE
     Dates: start: 201101
  2. POTASSIUM CITRATE [Concomitant]
     Indication: NEPHROLITHIASIS
     Dosage: 6 PILLS DAILY
  3. ESTRADIOL [Concomitant]
     Indication: HOT FLUSH
     Dosage: PATCH
  4. OMEPRAZOLE [Concomitant]
     Indication: GASTROOESOPHAGEAL REFLUX DISEASE
  5. MULTIVITAMINS [Concomitant]
     Indication: PRODUCT USED FOR UNKNOWN INDICATION
  6. CALCIUM [Concomitant]
     Indication: PRODUCT USED FOR UNKNOWN INDICATION
     Dosage: 2 PILLS DAILY

REACTIONS (1)
  - Crohn^s disease [Not Recovered/Not Resolved]
